FAERS Safety Report 13987489 (Version 1)
Quarter: 2017Q3

REPORT INFORMATION
  Report Type: Other
  Country: US (occurrence: US)
  Receive Date: 20170919
  Receipt Date: 20170919
  Transmission Date: 20171128
  Serious: Yes (Life-Threatening, Hospitalization, Other)
  Sender: FDA-Public Use
  Company Number: US-B. BRAUN MEDICAL INC.-2026807

PATIENT
  Age: 54 Year
  Sex: Male

DRUGS (6)
  1. MIDAZOLAM [Concomitant]
     Active Substance: MIDAZOLAM HYDROCHLORIDE
  2. DOPAMINE [Concomitant]
     Active Substance: DOPAMINE\DOPAMINE HYDROCHLORIDE
  3. FENTANYL. [Concomitant]
     Active Substance: FENTANYL
  4. LIDOCAINE 2% [Concomitant]
     Active Substance: LIDOCAINE
  5. ATROPINE. [Concomitant]
     Active Substance: ATROPINE
  6. 0.9% SODIUM CHLORIDE IRRIGATION USP 0264-7388-50 0264-7388-60 [Suspect]
     Active Substance: SODIUM CHLORIDE
     Indication: BRONCHIAL HAEMORRHAGE

REACTIONS (1)
  - Atrioventricular block complete [Recovered/Resolved]
